FAERS Safety Report 7936686-4 (Version None)
Quarter: 2011Q4

REPORT INFORMATION
  Report Type: 
  Country: None (occurrence: None)
  Receive Date: 20111123
  Receipt Date: 20111121
  Transmission Date: 20120403
  Serious: Yes (Other)
  Sender: FDA-Public Use
  Company Number: US-PFIZER INC-2011238147

PATIENT
  Sex: Female
  Weight: 52.154 kg

DRUGS (6)
  1. ABILIFY [Concomitant]
     Indication: DEPRESSION
     Dosage: 20 MG, UNK
  2. METHADONE [Concomitant]
     Dosage: 20 MG, DAILY
  3. PRISTIQ [Concomitant]
     Indication: DEPRESSION
     Dosage: 50 MG, UNK
     Route: 048
  4. GEODON [Concomitant]
     Indication: SCHIZOAFFECTIVE DISORDER
     Dosage: 80 MG, UNK
     Route: 048
  5. CHANTIX [Suspect]
     Dosage: 1 MG, UNK
     Route: 048
     Dates: start: 20110101, end: 20110101
  6. CHANTIX [Suspect]
     Indication: SMOKING CESSATION THERAPY
     Dosage: 0.5 MG, DAILY
     Route: 048
     Dates: start: 20110501, end: 20110101

REACTIONS (3)
  - VIOLENCE-RELATED SYMPTOM [None]
  - MOOD ALTERED [None]
  - HOSTILITY [None]
